FAERS Safety Report 12833392 (Version 1)
Quarter: 2016Q4

REPORT INFORMATION
  Report Type: Spontaneous
  Country: AU (occurrence: AU)
  Receive Date: 20161010
  Receipt Date: 20161010
  Transmission Date: 20170207
  Serious: Yes (Other)
  Sender: FDA-Public Use
  Company Number: AU-JNJFOC-20161006117

PATIENT
  Age: 32 Year
  Sex: Male

DRUGS (1)
  1. REMICADE [Suspect]
     Active Substance: INFLIXIMAB
     Indication: PSORIASIS
     Route: 042
     Dates: start: 201508, end: 201608

REACTIONS (2)
  - Myositis [Recovered/Resolved]
  - Autoimmune disorder [Recovered/Resolved]

NARRATIVE: CASE EVENT DATE: 201607
